FAERS Safety Report 5506298-0 (Version None)
Quarter: 2007Q4

REPORT INFORMATION
  Report Type: 
  Country: None (occurrence: None)
  Receive Date: 20071102
  Receipt Date: 20071102
  Transmission Date: 20080405
  Serious: No
  Sender: FDA-Public Use
  Company Number: None

PATIENT
  Sex: Male
  Weight: 116 kg

DRUGS (1)
  1. ZOMETA [Suspect]
     Dosage: 4 MG
     Dates: start: 20070726, end: 20070726

REACTIONS (5)
  - CONDITION AGGRAVATED [None]
  - DIZZINESS [None]
  - DYSPNOEA [None]
  - HYPOTENSION [None]
  - PERICARDIAL EFFUSION [None]
